FAERS Safety Report 16410331 (Version 2)
Quarter: 2019Q2

REPORT INFORMATION
  Report Type: Report from Study
  Country: GB (occurrence: GB)
  Receive Date: 20190610
  Receipt Date: 20190611
  Transmission Date: 20190711
  Serious: Yes (Death, Other)
  Sender: FDA-Public Use
  Company Number: GB-JNJFOC-20190407815

PATIENT
  Age: 29 Year
  Sex: Male
  Weight: 105 kg

DRUGS (2)
  1. DARATUMUMAB [Suspect]
     Active Substance: DARATUMUMAB
     Indication: T-CELL TYPE ACUTE LEUKAEMIA
     Route: 042
     Dates: start: 20190117
  2. VORICONAZOLE. [Suspect]
     Active Substance: VORICONAZOLE
     Indication: PRODUCT USED FOR UNKNOWN INDICATION
     Route: 065

REACTIONS (13)
  - Rash [Recovered/Resolved]
  - Pyrexia [Recovering/Resolving]
  - Urticaria [Unknown]
  - Dyspnoea [Fatal]
  - Nausea [Recovered/Resolved]
  - Fluid overload [Unknown]
  - Weight decreased [Unknown]
  - Neutropenic sepsis [Fatal]
  - Disease progression [Fatal]
  - Off label use [Unknown]
  - Infusion related reaction [Unknown]
  - Diarrhoea [Recovered/Resolved]
  - Product use in unapproved indication [Unknown]

NARRATIVE: CASE EVENT DATE: 2019
